FAERS Safety Report 17808163 (Version 1)
Quarter: 2020Q2

REPORT INFORMATION
  Report Type: Spontaneous
  Country: US (occurrence: US)
  Receive Date: 20200520
  Receipt Date: 20200520
  Transmission Date: 20200714
  Serious: Yes (Hospitalization)
  Sender: FDA-Public Use
  Company Number: None

PATIENT
  Sex: Female

DRUGS (15)
  1. FORTEO [Suspect]
     Active Substance: TERIPARATIDE
     Indication: SENILE OSTEOPOROSIS
     Route: 058
     Dates: start: 20191115
  2. LEVOTHYROXINE. [Concomitant]
     Active Substance: LEVOTHYROXINE
  3. DULOXETINE. [Concomitant]
     Active Substance: DULOXETINE
  4. LISINOPRIL. [Concomitant]
     Active Substance: LISINOPRIL
  5. PRAMIPEXOLE. [Concomitant]
     Active Substance: PRAMIPEXOLE
  6. BUPROPION. [Concomitant]
     Active Substance: BUPROPION
  7. FOLIC ACID. [Concomitant]
     Active Substance: FOLIC ACID
  8. TRAMADOL. [Concomitant]
     Active Substance: TRAMADOL
  9. OXYCODONE [Concomitant]
     Active Substance: OXYCODONE
  10. CALCITROL [Concomitant]
  11. ONDANSETRON [Concomitant]
     Active Substance: ONDANSETRON
  12. BUSIPIRONE [Concomitant]
  13. METHOTREXATE. [Concomitant]
     Active Substance: METHOTREXATE
  14. LORAZEPAM. [Concomitant]
     Active Substance: LORAZEPAM
  15. ZOLPIDEM [Concomitant]
     Active Substance: ZOLPIDEM TARTRATE

REACTIONS (2)
  - Therapy interrupted [None]
  - Ankle operation [None]
